FAERS Safety Report 15513349 (Version 1)
Quarter: 2018Q4

REPORT INFORMATION
  Report Type: Spontaneous
  Country: US (occurrence: US)
  Receive Date: 20181017
  Receipt Date: 20181017
  Transmission Date: 20190205
  Serious: Yes (Life-Threatening, Disabling, Other)
  Sender: FDA-Public Use
  Company Number: None

PATIENT
  Age: 33 Year
  Sex: Female
  Weight: 51.75 kg

DRUGS (2)
  1. S. BOULARDII [Concomitant]
  2. CLINDAMYCIN. [Suspect]
     Active Substance: CLINDAMYCIN
     Indication: BACTERIAL VAGINOSIS
     Dosage: ?          QUANTITY:14 CAPSULE(S);?
     Route: 048
     Dates: start: 20180820, end: 20180826

REACTIONS (2)
  - Clostridium difficile colitis [None]
  - Bowel movement irregularity [None]

NARRATIVE: CASE EVENT DATE: 20180908
